FAERS Safety Report 17835909 (Version 4)
Quarter: 2020Q4

REPORT INFORMATION
  Report Type: Spontaneous
  Country: US (occurrence: US)
  Receive Date: 20200528
  Receipt Date: 20201021
  Transmission Date: 20210113
  Serious: Yes (Other)
  Sender: FDA-Public Use
  Company Number: US-TEVA-2020-US-1240112

PATIENT
  Age: 58 Year
  Sex: Female

DRUGS (2)
  1. LISINOPRIL AND HYDROCHLOROTHIAZIDE [Suspect]
     Active Substance: HYDROCHLOROTHIAZIDE\LISINOPRIL
     Indication: HYPERTENSION
     Dosage: FORM STRENGTH: 20/12.5 MG
     Route: 065
     Dates: start: 20200417
  2. DILANTIN [Concomitant]
     Active Substance: PHENYTOIN
     Indication: SEIZURE

REACTIONS (27)
  - Nausea [Not Recovered/Not Resolved]
  - Malaise [Not Recovered/Not Resolved]
  - Xerosis [Unknown]
  - Pleural effusion [Unknown]
  - Rash [Not Recovered/Not Resolved]
  - Pruritus [Not Recovered/Not Resolved]
  - Drug ineffective [Unknown]
  - Nasal congestion [Unknown]
  - Breast pain [Unknown]
  - Pain [Unknown]
  - Skin plaque [Not Recovered/Not Resolved]
  - Lupus-like syndrome [Unknown]
  - Skin exfoliation [Not Recovered/Not Resolved]
  - Asthma [Unknown]
  - Swelling [Recovered/Resolved]
  - Erythema [Unknown]
  - Skin warm [Unknown]
  - Product quality issue [Unknown]
  - Psoriasis [Unknown]
  - Drug hypersensitivity [Not Recovered/Not Resolved]
  - Dry skin [Not Recovered/Not Resolved]
  - Dry skin [Unknown]
  - Feeding disorder [Not Recovered/Not Resolved]
  - Hair colour changes [Not Recovered/Not Resolved]
  - Rhinorrhoea [Unknown]
  - Haemorrhage [Unknown]
  - Speech disorder [Unknown]

NARRATIVE: CASE EVENT DATE: 20200518
